FAERS Safety Report 7400907-7 (Version None)
Quarter: 2011Q2

REPORT INFORMATION
  Report Type: 
  Country: None (occurrence: None)
  Receive Date: 20110407
  Receipt Date: 20110329
  Transmission Date: 20111010
  Serious: Yes (Hospitalization)
  Sender: FDA-Public Use
  Company Number: KH-ASTRAZENECA-2011SE18506

PATIENT
  Age: 0 Week
  Sex: Female

DRUGS (6)
  1. SYMBICORT [Suspect]
     Indication: ASTHMA
     Route: 055
     Dates: start: 20090101
  2. SEROQUEL [Suspect]
     Indication: ANXIETY
     Route: 048
     Dates: start: 20090101
  3. SEROQUEL [Suspect]
     Route: 048
     Dates: start: 20100623
  4. SYMBICORT [Suspect]
     Route: 055
     Dates: start: 20100623
  5. SEROQUEL [Suspect]
     Route: 048
     Dates: start: 20090101
  6. SEROQUEL [Suspect]
     Route: 048
     Dates: start: 20100623

REACTIONS (3)
  - POOR QUALITY SLEEP [None]
  - DRUG EXPOSURE VIA BREAST MILK [None]
  - OXYGEN SATURATION DECREASED [None]
